FAERS Safety Report 8505616-9 (Version None)
Quarter: 2012Q3

REPORT INFORMATION
  Report Type: 
  Country: None (occurrence: None)
  Receive Date: 20120712
  Receipt Date: 20120704
  Transmission Date: 20120928
  Serious: Yes (Hospitalization)
  Sender: FDA-Public Use
  Company Number: CN-PFIZER INC-2012134986

PATIENT

DRUGS (8)
  1. ASPIRIN [Concomitant]
     Dosage: 100 MG, UNK
  2. TIROFIBAN HYDROCHLORIDE [Concomitant]
     Dosage: 0.4 MCG/KG.MIN, INFUSION FOR 30 MINUTES
     Route: 041
  3. PANTOPRAZOLE SODIUM [Suspect]
     Dosage: 40 MG, 2X/DAY
     Route: 048
  4. CLOPIDOGREL [Concomitant]
     Dosage: 75 MG
  5. PANTOPRAZOLE SODIUM [Suspect]
     Indication: PROPHYLAXIS
     Dosage: 40 MG, DAILY
     Route: 058
  6. TIROFIBAN HYDROCHLORIDE [Concomitant]
     Dosage: 0.1 MCG/KG.MIN, INFUSION , - STOPPED (FOR 2-3 DAYS )
     Route: 041
  7. ENOXAPARIN [Concomitant]
     Dosage: 40 MG, 2X/DAY
     Route: 058
  8. ENOXAPARIN [Concomitant]
     Dosage: 1 MG/KG 12 HOURS, FOR 3-4 DAYS
     Route: 058

REACTIONS (1)
  - MYOCARDIAL INFARCTION [None]
